FAERS Safety Report 9142657 (Version 1)
Quarter: 2013Q1

REPORT INFORMATION
  Report Type: Spontaneous
  Country: MX (occurrence: MX)
  Receive Date: 20130306
  Receipt Date: 20130306
  Transmission Date: 20140127
  Serious: Yes (Death)
  Sender: FDA-Public Use
  Company Number: PHHY2013MX021666

PATIENT
  Age: 92 Year
  Sex: Female

DRUGS (4)
  1. DIOVAN [Suspect]
     Indication: HYPERTENSION
     Dosage: 1 DF, DAILY (160 MG)
     Route: 048
     Dates: start: 201110
  2. UNIVAL//SUCRALFATE [Concomitant]
     Dosage: 2 UKN, DAILY
     Dates: end: 201302
  3. OMEPRAZOLE [Concomitant]
     Dosage: 2 UKN, DAILY
     Dates: end: 201302
  4. ASPIRIN PROTECT [Concomitant]
     Dosage: 2 UKN, DAILY
     Dates: end: 201302

REACTIONS (1)
  - Infarction [Fatal]
